FAERS Safety Report 20085053 (Version 1)
Quarter: 2021Q4

REPORT INFORMATION
  Report Type: Spontaneous
  Country: US (occurrence: US)
  Receive Date: 20211118
  Receipt Date: 20211118
  Transmission Date: 20220303
  Serious: No
  Sender: FDA-Public Use
  Company Number: US-CELGENE-USA-20211102735

PATIENT
  Sex: Male
  Weight: 67.646 kg

DRUGS (4)
  1. REVLIMID [Suspect]
     Active Substance: LENALIDOMIDE
     Indication: Plasma cell myeloma
     Dosage: 5 MG
     Route: 048
     Dates: start: 20191126
  2. REVLIMID [Suspect]
     Active Substance: LENALIDOMIDE
     Dosage: 2.5 MG
     Route: 048
     Dates: start: 202006
  3. ZARXIO [Concomitant]
     Active Substance: FILGRASTIM-SNDZ
     Indication: Product used for unknown indication
     Route: 065
  4. ALBUTEROL [Concomitant]
     Active Substance: ALBUTEROL
     Indication: Product used for unknown indication
     Route: 065

REACTIONS (3)
  - Restless legs syndrome [Unknown]
  - Blood phosphorus increased [Unknown]
  - Cough [Unknown]
